FAERS Safety Report 8137593 (Version 7)
Quarter: 2014Q3

REPORT INFORMATION
  Report Type: Spontaneous
  Country: US (occurrence: US)
  Receive Date: 20110915
  Receipt Date: 20140703
  Transmission Date: 20150326
  Serious: Yes (Other)
  Sender: FDA-Public Use
  Company Number: US-ROCHE-802152

PATIENT
  Age: 19 Year
  Sex: Male
  Weight: 65.83 kg

DRUGS (1)
  1. ACCUTANE [Suspect]
     Active Substance: ISOTRETINOIN
     Indication: ACNE
     Route: 065
     Dates: start: 1991, end: 1992

REACTIONS (9)
  - Deep vein thrombosis [Unknown]
  - Clostridium difficile colitis [Unknown]
  - Inflammatory bowel disease [Unknown]
  - Injury [Unknown]
  - Intestinal obstruction [Unknown]
  - Crohn^s disease [Unknown]
  - Irritable bowel syndrome [Unknown]
  - Dry skin [Unknown]
  - Depression [Unknown]

NARRATIVE: CASE EVENT DATE: 19910306
